FAERS Safety Report 6890213-1 (Version None)
Quarter: 2010Q3

REPORT INFORMATION
  Report Type: 
  Country: None (occurrence: None)
  Receive Date: 20100730
  Receipt Date: 20081120
  Transmission Date: 20110219
  Serious: No
  Sender: FDA-Public Use
  Company Number: US-PFIZER INC-2008076326

PATIENT
  Age: 38 Year
  Sex: Male
  Weight: 81.65 kg

DRUGS (1)
  1. LIPITOR [Suspect]

REACTIONS (1)
  - MUSCULAR WEAKNESS [None]
